FAERS Safety Report 9216535 (Version 1)
Quarter: 2013Q2

REPORT INFORMATION
  Report Type: Spontaneous
  Country: GB (occurrence: None)
  Receive Date: 20130404
  Receipt Date: 20130404
  Transmission Date: 20140414
  Serious: Yes (Other)
  Sender: FDA-Public Use
  Company Number: GB-DEXPHARM-20130128

PATIENT
  Age: 43 Year
  Sex: Female

DRUGS (1)
  1. ALCOHOL\CHLORHEXIDINE GLUCONATE [Suspect]
     Route: 055

REACTIONS (1)
  - Occupational asthma [None]
